FAERS Safety Report 5051359-6 (Version None)
Quarter: 2006Q3

REPORT INFORMATION
  Report Type: 
  Country: None (occurrence: None)
  Receive Date: 20060714
  Receipt Date: 20060618
  Transmission Date: 20061208
  Serious: Yes (Other)
  Sender: FDA-Public Use
  Company Number: HQWYE771011JUL06

PATIENT
  Age: 28 Year
  Sex: Male

DRUGS (3)
  1. ENBREL [Suspect]
     Indication: POLYARTHRITIS
     Route: 058
     Dates: start: 20060401, end: 20060601
  2. CORTICOSTEROID NOS [Concomitant]
     Indication: POLYARTHRITIS
     Dosage: VARIABLE DOSAGE
     Route: 065
  3. CYCLOPHOSPHAMIDE [Concomitant]
     Indication: POLYARTHRITIS
     Dosage: 1 G
     Route: 065

REACTIONS (5)
  - POLYARTHRITIS [None]
  - PURPURA [None]
  - RHEUMATOID ARTHRITIS [None]
  - THERAPEUTIC RESPONSE DECREASED [None]
  - VASCULITIS [None]
